FAERS Safety Report 5575780-2 (Version None)
Quarter: 2007Q4

REPORT INFORMATION
  Report Type: 
  Country: None (occurrence: None)
  Receive Date: 20071221
  Receipt Date: 20071213
  Transmission Date: 20080405
  Serious: Yes (Hospitalization)
  Sender: FDA-Public Use
  Company Number: S07-CAN-05812-01

PATIENT
  Age: 48 Year
  Sex: Female

DRUGS (2)
  1. ESCITALOPRAM [Suspect]
     Indication: DEPRESSION
     Dosage: 10 MG QD PO
     Route: 048
     Dates: start: 20071001, end: 20071020
  2. CELEBREX [Concomitant]

REACTIONS (2)
  - RHABDOMYOLYSIS [None]
  - VIRAL INFECTION [None]
